FAERS Safety Report 5585779-8 (Version None)
Quarter: 2008Q1

REPORT INFORMATION
  Report Type: 
  Country: None (occurrence: None)
  Receive Date: 20080109
  Receipt Date: 20071228
  Transmission Date: 20080703
  Serious: Yes (Other)
  Sender: FDA-Public Use
  Company Number: US-RANBAXY-2007US-12433

PATIENT

DRUGS (4)
  1. DONEPEZIL HCL [Suspect]
     Indication: DEMENTIA ALZHEIMER'S TYPE
     Dosage: UNK
     Route: 065
  2. CYCLOPENTOLATE HCL [Concomitant]
     Indication: MYDRIASIS
     Dosage: UNK
     Route: 065
  3. PHENYLEPHRINE [Concomitant]
     Indication: MYDRIASIS
     Dosage: UNK
     Route: 065
  4. DICLOFENAC SODIUM [Concomitant]
     Indication: MYDRIASIS
     Dosage: UNK
     Route: 065

REACTIONS (1)
  - FLOPPY IRIS SYNDROME [None]
